FAERS Safety Report 7244433-7 (Version None)
Quarter: 2011Q1

REPORT INFORMATION
  Report Type: 
  Country: None (occurrence: None)
  Receive Date: 20110125
  Receipt Date: 20110114
  Transmission Date: 20110831
  Serious: Yes (Other)
  Sender: FDA-Public Use
  Company Number: PHHY2011US03996

PATIENT
  Sex: Female

DRUGS (1)
  1. AREDIA [Suspect]

REACTIONS (2)
  - RENAL DISORDER [None]
  - INCORRECT DRUG ADMINISTRATION DURATION [None]
